FAERS Safety Report 20083115 (Version 2)
Quarter: 2021Q4

REPORT INFORMATION
  Report Type: Report from Study
  Country: CZ (occurrence: CZ)
  Receive Date: 20211117
  Receipt Date: 20211118
  Transmission Date: 20220304
  Serious: Yes (Hospitalization)
  Sender: FDA-Public Use
  Company Number: CZ-ABBVIE-21K-217-4164432-00

PATIENT
  Age: 59 Year
  Sex: Male

DRUGS (1)
  1. HUMIRA [Suspect]
     Active Substance: ADALIMUMAB
     Indication: Crohn^s disease
     Route: 058

REACTIONS (3)
  - Erythema nodosum [Recovered/Resolved]
  - Folliculitis [Recovered/Resolved]
  - Erythema nodosum [Recovered/Resolved]

NARRATIVE: CASE EVENT DATE: 20210923
